FAERS Safety Report 7217777-2 (Version None)
Quarter: 2011Q1

REPORT INFORMATION
  Report Type: 
  Country: None (occurrence: None)
  Receive Date: 20110110
  Receipt Date: 20101230
  Transmission Date: 20110831
  Serious: Yes (Hospitalization)
  Sender: FDA-Public Use
  Company Number: PHHY2010FR89391

PATIENT
  Sex: Female

DRUGS (3)
  1. LEVOTHYROXINE [Concomitant]
     Dosage: 25 UG, QD
  2. EXELON [Suspect]
     Indication: DEMENTIA ALZHEIMER'S TYPE
  3. DEPAKENE [Suspect]
     Dosage: UNK
     Dates: end: 20101118

REACTIONS (3)
  - ANTICONVULSANT DRUG LEVEL INCREASED [None]
  - THROMBOCYTOPENIA [None]
  - SOMNOLENCE [None]
